FAERS Safety Report 16440186 (Version 2)
Quarter: 2019Q3

REPORT INFORMATION
  Report Type: Spontaneous
  Country: CA (occurrence: CA)
  Receive Date: 20190617
  Receipt Date: 20190718
  Transmission Date: 20191004
  Serious: Yes (Other)
  Sender: FDA-Public Use
  Company Number: CA-PFIZER INC-2018333638

PATIENT
  Age: 71 Year
  Sex: Female
  Weight: 65 kg

DRUGS (4)
  1. XELJANZ [Suspect]
     Active Substance: TOFACITINIB CITRATE
     Indication: RHEUMATOID ARTHRITIS
     Dosage: 5 MG, 2X/DAY (BID)
     Route: 048
     Dates: start: 20180719, end: 20190424
  2. PREDNISONE. [Concomitant]
     Active Substance: PREDNISONE
     Indication: RHEUMATOID ARTHRITIS
     Dosage: 35 MG, UNK
  3. PREDNISONE. [Concomitant]
     Active Substance: PREDNISONE
     Dosage: 3 MG, (TAPERING)
  4. PREDNISONE. [Concomitant]
     Active Substance: PREDNISONE
     Dosage: 5 MG, UNK
     Dates: start: 201811

REACTIONS (16)
  - Diverticulitis [Unknown]
  - Dizziness postural [Unknown]
  - Limb discomfort [Unknown]
  - Feeling of body temperature change [Unknown]
  - Muscular weakness [Unknown]
  - Renal disorder [Unknown]
  - Gastrointestinal pain [Unknown]
  - Myalgia [Unknown]
  - Feeling abnormal [Unknown]
  - Balance disorder [Unknown]
  - Peripheral swelling [Unknown]
  - Joint swelling [Unknown]
  - Infection [Unknown]
  - Pain in extremity [Not Recovered/Not Resolved]
  - Hyperhidrosis [Unknown]
  - Asthenia [Unknown]

NARRATIVE: CASE EVENT DATE: 201811
